FAERS Safety Report 24642086 (Version 2)
Quarter: 2024Q4

REPORT INFORMATION
  Report Type: Spontaneous
  Country: US (occurrence: US)
  Receive Date: 20241120
  Receipt Date: 20241209
  Transmission Date: 20250115
  Serious: No
  Sender: MYLAN
  Company Number: US-MYLANLABS-2024M1102856

PATIENT
  Age: 19 Year

DRUGS (2)
  1. NORETHINDRONE [Suspect]
     Active Substance: NORETHINDRONE
     Indication: Product used for unknown indication
     Dosage: UNK
     Route: 065
     Dates: start: 202202
  2. SLYND [Concomitant]
     Active Substance: DROSPIRENONE
     Dosage: UNK
     Route: 065

REACTIONS (1)
  - Haemorrhage [Unknown]
